FAERS Safety Report 10534484 (Version 2)
Quarter: 2014Q4

REPORT INFORMATION
  Report Type: Spontaneous
  Country: US (occurrence: US)
  Receive Date: 20141022
  Receipt Date: 20141022
  Transmission Date: 20150529
  Serious: Yes (Other)
  Sender: FDA-Public Use
  Company Number: US-AMGEN-USASP2014030812

PATIENT
  Age: 40 Year
  Sex: Female

DRUGS (1)
  1. ENBREL [Suspect]
     Active Substance: ETANERCEPT
     Indication: RHEUMATOID ARTHRITIS
     Dosage: 50 MG, QWK
     Route: 065
     Dates: start: 20140121, end: 20140731

REACTIONS (18)
  - Lower respiratory tract infection [Unknown]
  - Throat irritation [Not Recovered/Not Resolved]
  - Immune system disorder [Unknown]
  - Inflammation [Recovered/Resolved]
  - Dyspnoea [Recovered/Resolved]
  - Infection [Recovered/Resolved]
  - Fatigue [Not Recovered/Not Resolved]
  - Nausea [Recovered/Resolved]
  - Joint swelling [Recovered/Resolved]
  - Sinusitis [Recovered/Resolved]
  - Rheumatoid arthritis [Not Recovered/Not Resolved]
  - Eye pruritus [Not Recovered/Not Resolved]
  - Productive cough [Not Recovered/Not Resolved]
  - Infection susceptibility increased [Unknown]
  - Arthritis [Not Recovered/Not Resolved]
  - Malaise [Unknown]
  - Cough [Not Recovered/Not Resolved]
  - Conjunctivitis [Unknown]

NARRATIVE: CASE EVENT DATE: 2014
